FAERS Safety Report 25833330 (Version 1)
Quarter: 2025Q3

REPORT INFORMATION
  Report Type: Spontaneous
  Country: US (occurrence: US)
  Receive Date: 20250922
  Receipt Date: 20250922
  Transmission Date: 20251021
  Serious: No
  Sender: BRISTOL-MYERS SQUIBB COMPANY
  Company Number: US-BRISTOL-MYERS SQUIBB COMPANY-2025-129979

PATIENT
  Age: 50 Year
  Sex: Female

DRUGS (3)
  1. ZEPOSIA [Suspect]
     Active Substance: OZANIMOD HYDROCHLORIDE
     Indication: Multiple sclerosis
     Dosage: FREQUENCY CYCLE - 0.23 MG 1 TIME A DAY FOR 4 DAYS
     Dates: start: 202508
  2. ZEPOSIA [Suspect]
     Active Substance: OZANIMOD HYDROCHLORIDE
     Dosage: FREQUENCY CYCLE - 0.46 MG 1 TIME A DAY FOR 3 DAYS
     Dates: start: 202508
  3. ZEPOSIA [Suspect]
     Active Substance: OZANIMOD HYDROCHLORIDE
     Dosage: FREQUENCY CYCLE - 0.92 MG 1 TIME A DAY THEREAFTER
     Dates: start: 202508

REACTIONS (2)
  - Psoriasis [Unknown]
  - Anxiety [Unknown]
